FAERS Safety Report 25790380 (Version 5)
Quarter: 2025Q4

REPORT INFORMATION
  Report Type: Spontaneous
  Country: GB (occurrence: GB)
  Receive Date: 20250911
  Receipt Date: 20251009
  Transmission Date: 20260119
  Serious: Yes (Hospitalization, Other)
  Sender: MYLAN
  Company Number: GB-MYLANLABS-2025M1076585

PATIENT
  Sex: Female

DRUGS (3)
  1. CLOZARIL [Suspect]
     Active Substance: CLOZAPINE
     Indication: Schizophrenia
     Dosage: 100 MILLIGRAM, PM (AT NIGHT, APPROXIMATELY 20-AUG-2025)
     Dates: start: 20040301
  2. CLOZARIL [Suspect]
     Active Substance: CLOZAPINE
     Dosage: UNK
  3. CLOZARIL [Suspect]
     Active Substance: CLOZAPINE
     Dosage: UNK (RE-TITRATION)
     Dates: start: 20250903, end: 20250904

REACTIONS (6)
  - Mental impairment [Unknown]
  - Schizophrenia [Unknown]
  - Breast cancer [Unknown]
  - Deep vein thrombosis [Unknown]
  - Treatment noncompliance [Unknown]
  - Dysphagia [Unknown]
